FAERS Safety Report 23358806 (Version 1)
Quarter: 2024Q1

REPORT INFORMATION
  Report Type: Spontaneous
  Country: AU (occurrence: AU)
  Receive Date: 20240102
  Receipt Date: 20240102
  Transmission Date: 20240409
  Serious: Yes (Other)
  Sender: FDA-Public Use
  Company Number: AU-PFIZER INC-PV202300206636

PATIENT
  Age: 61 Year
  Sex: Female

DRUGS (3)
  1. METHOTREXATE SODIUM [Suspect]
     Active Substance: METHOTREXATE SODIUM
     Indication: Lichen planus
     Dosage: 20 MG, WEEKLY
     Route: 065
     Dates: start: 20180101, end: 20190101
  2. CYCLOSPORINE [Suspect]
     Active Substance: CYCLOSPORINE
     Indication: Lichen planus
     Dosage: 75 MG, 2X/DAY
     Route: 065
     Dates: start: 20200101, end: 20230201
  3. MYCOPHENOLIC ACID [Suspect]
     Active Substance: MYCOPHENOLIC ACID
     Indication: Lichen planus
     Dosage: 1 G, 2X/DAY
     Route: 065
     Dates: start: 20190101

REACTIONS (9)
  - Oesophageal stenosis [Unknown]
  - Dysphagia [Not Recovered/Not Resolved]
  - Inflammation [Unknown]
  - Steroid dependence [Unknown]
  - Disease recurrence [Unknown]
  - Drug ineffective for unapproved indication [Unknown]
  - Drug intolerance [Unknown]
  - Off label use [Unknown]
  - Therapy partial responder [Unknown]
